FAERS Safety Report 16044346 (Version 8)
Quarter: 2020Q2

REPORT INFORMATION
  Report Type: Spontaneous
  Country: US (occurrence: US)
  Receive Date: 20190306
  Receipt Date: 20200619
  Transmission Date: 20200713
  Serious: No
  Sender: FDA-Public Use
  Company Number: US-BIOMARINAP-US-2019-122296

PATIENT
  Age: 37 Year
  Sex: Female

DRUGS (2)
  1. ALDURAZYME [Suspect]
     Active Substance: LARONIDASE
     Indication: MUCOPOLYSACCHARIDOSIS I
     Dosage: 26.10 MILLIGRAM, QW
     Route: 041
     Dates: start: 20050623
  2. ALDURAZYME [Suspect]
     Active Substance: LARONIDASE
     Dosage: UNK
     Route: 041
     Dates: start: 20050803

REACTIONS (16)
  - Hypotension [Unknown]
  - Visual impairment [Not Recovered/Not Resolved]
  - Memory impairment [Not Recovered/Not Resolved]
  - Condition aggravated [Not Recovered/Not Resolved]
  - Anal incontinence [Not Recovered/Not Resolved]
  - Hypoaesthesia [Unknown]
  - Emotional disorder [Not Recovered/Not Resolved]
  - Oropharyngeal pain [Unknown]
  - Incontinence [Not Recovered/Not Resolved]
  - Weight decreased [Unknown]
  - Dizziness [Unknown]
  - Limb discomfort [Not Recovered/Not Resolved]
  - Product dose omission [Unknown]
  - SARS-CoV-2 test positive [Unknown]
  - Fall [Unknown]
  - Behaviour disorder [Not Recovered/Not Resolved]

NARRATIVE: CASE EVENT DATE: 202005
